FAERS Safety Report 10078922 (Version 2)
Quarter: 2014Q2

REPORT INFORMATION
  Report Type: Spontaneous
  Country: US (occurrence: US)
  Receive Date: 20140415
  Receipt Date: 20140424
  Transmission Date: 20141212
  Serious: Yes (Other)
  Sender: FDA-Public Use
  Company Number: US-PFIZER INC-2014103436

PATIENT
  Age: 30 Year
  Sex: Female

DRUGS (4)
  1. ARGATROBAN [Suspect]
     Indication: THROMBOSIS IN DEVICE
     Dosage: UNK
     Route: 051
  2. HEPARIN [Concomitant]
     Indication: THROMBOSIS
     Dosage: UNK
  3. WARFARIN [Concomitant]
     Indication: THROMBOSIS
     Dosage: UNK
  4. DIPYRIDAMOLE [Concomitant]
     Indication: THROMBOSIS IN DEVICE
     Dosage: 75 MG, 3X/DAY

REACTIONS (3)
  - Subdural haematoma [Recovered/Resolved]
  - Hemiplegia [Unknown]
  - Convulsion [Unknown]
